FAERS Safety Report 22127680 (Version 1)
Quarter: 2023Q1

REPORT INFORMATION
  Report Type: Spontaneous
  Country: SA (occurrence: SA)
  Receive Date: 20230323
  Receipt Date: 20230323
  Transmission Date: 20230417
  Serious: Yes (Hospitalization)
  Sender: FDA-Public Use
  Company Number: SA-STRIDES ARCOLAB LIMITED-2023SP004101

PATIENT
  Age: 61 Year
  Sex: Male

DRUGS (4)
  1. PREDNISOLONE [Suspect]
     Active Substance: PREDNISOLONE
     Indication: B-cell lymphoma
     Dosage: UNK, CYCLICAL (CONTINUING THE SIXTH CYCLE)
     Route: 065
  2. RITUXIMAB [Suspect]
     Active Substance: RITUXIMAB
     Indication: B-cell lymphoma
     Dosage: UNK, CYCLICAL (CONTINUING THE SIXTH CYCLE)
     Route: 065
  3. CYCLOPHOSPHAMIDE [Suspect]
     Active Substance: CYCLOPHOSPHAMIDE
     Indication: B-cell lymphoma
     Dosage: UNK, CYCLICAL (CONTINUING THE SIXTH CYCLE)
     Route: 065
  4. VINCRISTINE [Suspect]
     Active Substance: VINCRISTINE
     Indication: B-cell lymphoma
     Dosage: UNK, CYCLICAL (CONTINUING THE SIXTH CYCLE)
     Route: 065

REACTIONS (8)
  - Persistent corneal epithelial defect [Recovered/Resolved]
  - Keratitis [Unknown]
  - Necrosis [Unknown]
  - Corneal perforation [Unknown]
  - Eye disorder [Unknown]
  - Hypopyon [Unknown]
  - Morganella infection [Recovered/Resolved]
  - Endophthalmitis [Unknown]
